FAERS Safety Report 5548381-X (Version None)
Quarter: 2007Q4

REPORT INFORMATION
  Report Type: 
  Country: None (occurrence: None)
  Receive Date: 20071207
  Receipt Date: 20071122
  Transmission Date: 20080405
  Serious: Yes (Hospitalization)
  Sender: FDA-Public Use
  Company Number: FR-1164641

PATIENT
  Sex: Female

DRUGS (1)
  1. TOBRADEX [Suspect]
     Dosage: OPHTHALMIC
     Route: 047
     Dates: start: 20071029, end: 20071104

REACTIONS (1)
  - ENCEPHALOPATHY [None]
